FAERS Safety Report 6275129-6 (Version None)
Quarter: 2009Q3

REPORT INFORMATION
  Report Type: 
  Country: None (occurrence: None)
  Receive Date: 20090721
  Receipt Date: 20090709
  Transmission Date: 20100115
  Serious: Yes (Other)
  Sender: FDA-Public Use
  Company Number: US-JNJFOC-20090703277

PATIENT
  Age: 55 Year
  Sex: Female

DRUGS (4)
  1. INFLIXIMAB [Suspect]
     Indication: SCLERITIS
     Dosage: WEEKS 0, 2, 6, THEN EVERY 4 WEEKS THROUGH WEEK 30, THEN WEEKS 36, 48 (ESCALATED DOSE AT WEEK 34)
     Route: 042
  2. PREDNISONE TAB [Concomitant]
  3. PREDNISONE TAB [Concomitant]
  4. PREDNISONE TAB [Concomitant]

REACTIONS (8)
  - DIARRHOEA [None]
  - HEAD TITUBATION [None]
  - HEADACHE [None]
  - NASAL CONGESTION [None]
  - PARAESTHESIA [None]
  - STOMATITIS [None]
  - UPPER RESPIRATORY TRACT INFECTION [None]
  - URINARY TRACT INFECTION [None]
